FAERS Safety Report 4506678-6 (Version None)
Quarter: 2004Q4

REPORT INFORMATION
  Report Type: 
  Country: None (occurrence: None)
  Receive Date: 20041117
  Receipt Date: 20041104
  Transmission Date: 20050328
  Serious: Yes (Death, Hospitalization)
  Sender: FDA-Public Use
  Company Number: EM2004-0552

PATIENT
  Age: 38 Year
  Sex: Female

DRUGS (25)
  1. PROLEUKIN [Suspect]
     Indication: ACUTE MYELOID LEUKAEMIA
     Dosage: 1.74 MU, QD, SUBCUTAN.
     Route: 058
     Dates: start: 20020617, end: 20020709
  2. MARINOL [Concomitant]
  3. SPORANOX [Concomitant]
  4. PREVACID [Concomitant]
  5. ATIVAN [Concomitant]
  6. REGLAN [Concomitant]
  7. MEDROL [Concomitant]
  8. ZOLOFT [Concomitant]
  9. BACTRIM DS [Concomitant]
  10. VALTREX [Concomitant]
  11. PENICILLIN-VK [Concomitant]
  12. OXYCODONE (OXYCODONE) [Concomitant]
  13. POTASSIUM CHLORIDE [Concomitant]
  14. CIPRO [Concomitant]
  15. FORTAZ (CEFTAZIDIME) [Concomitant]
  16. PROMETHAZINE [Concomitant]
  17. PYRIDIUM (PHENAZOPYRIDINE HYDROCHLORIDE) [Concomitant]
  18. ATARAX [Concomitant]
  19. COMPAZINE [Concomitant]
  20. MYCELEX [Concomitant]
  21. DEPO-PROVERA SUSPENSION/INJ [Concomitant]
  22. PENTAMIDINE (PENTAMIDINE) [Concomitant]
  23. AMBIEN [Concomitant]
  24. ROCEPHIN [Concomitant]
  25. VFEND [Concomitant]

REACTIONS (9)
  - ABDOMINAL TENDERNESS [None]
  - ANOREXIA [None]
  - DRUG INEFFECTIVE [None]
  - DRUG INTOLERANCE [None]
  - GRAFT VERSUS HOST DISEASE [None]
  - LEUKAEMIA RECURRENT [None]
  - T-CELL DEPLETION [None]
  - URINARY TRACT INFECTION [None]
  - VAGINITIS [None]
